FAERS Safety Report 13151359 (Version 1)
Quarter: 2017Q1

REPORT INFORMATION
  Report Type: Spontaneous
  Country: US (occurrence: US)
  Receive Date: 20170125
  Receipt Date: 20170125
  Transmission Date: 20170428
  Serious: Yes (Other)
  Sender: FDA-Public Use
  Company Number: None

PATIENT
  Age: 74 Year
  Sex: Male
  Weight: 68.04 kg

DRUGS (9)
  1. ELIQUIS [Concomitant]
     Active Substance: APIXABAN
  2. SYMBICORT [Concomitant]
     Active Substance: BUDESONIDE\FORMOTEROL FUMARATE DIHYDRATE
  3. PRAVASTATIN. [Concomitant]
     Active Substance: PRAVASTATIN
  4. GLIPIZIDE. [Concomitant]
     Active Substance: GLIPIZIDE
  5. ENTRESTO [Suspect]
     Active Substance: SACUBITRIL\VALSARTAN
     Indication: PRODUCT USED FOR UNKNOWN INDICATION
     Route: 048
     Dates: start: 20161104, end: 20161109
  6. RANEXA [Concomitant]
     Active Substance: RANOLAZINE
  7. DIGOXIN. [Concomitant]
     Active Substance: DIGOXIN
  8. CARVEDILOL. [Concomitant]
     Active Substance: CARVEDILOL
  9. METFORMIN [Concomitant]
     Active Substance: METFORMIN HYDROCHLORIDE

REACTIONS (6)
  - Dysphagia [None]
  - Dyspnoea [None]
  - Throat tightness [None]
  - Pharyngeal oedema [None]
  - Swelling face [None]
  - Oropharyngeal pain [None]

NARRATIVE: CASE EVENT DATE: 20161109
